FAERS Safety Report 9464822 (Version 2)
Quarter: 2013Q3

REPORT INFORMATION
  Report Type: Spontaneous
  Country: US (occurrence: US)
  Receive Date: 20130819
  Receipt Date: 20130927
  Transmission Date: 20140515
  Serious: No
  Sender: FDA-Public Use
  Company Number: US-PFIZER INC-2013234645

PATIENT
  Age: 67 Year
  Sex: Male

DRUGS (1)
  1. SUTENT [Suspect]
     Indication: SOFT TISSUE CANCER
     Dosage: 50 MG, UNK
     Dates: start: 20130415, end: 20130626

REACTIONS (1)
  - Off label use [Unknown]
